FAERS Safety Report 6477887-4 (Version None)
Quarter: 2009Q4

REPORT INFORMATION
  Report Type: 
  Country: None (occurrence: None)
  Receive Date: 20091207
  Receipt Date: 20091125
  Transmission Date: 20100525
  Serious: Yes (Hospitalization)
  Sender: FDA-Public Use
  Company Number: BE-CELGENEUS-013-50794-09112003

PATIENT
  Sex: Female
  Weight: 56.7 kg

DRUGS (1)
  1. VIDAZA [Suspect]
     Route: 058
     Dates: start: 20090923, end: 20091028

REACTIONS (2)
  - ASPERGILLOSIS [None]
  - FEBRILE NEUTROPENIA [None]
